FAERS Safety Report 4707278-5 (Version None)
Quarter: 2005Q3

REPORT INFORMATION
  Report Type: 
  Country: None (occurrence: None)
  Receive Date: 20050701
  Receipt Date: 20050620
  Transmission Date: 20060218
  Serious: Yes (Hospitalization)
  Sender: FDA-Public Use
  Company Number: HQWYE335509JUN05

PATIENT
  Age: 45 Year
  Sex: Female

DRUGS (4)
  1. ARTANE [Suspect]
     Indication: TREMOR
     Dosage: 6 MG 1X PER 1 DAY ORAL
     Route: 048
     Dates: start: 20050513, end: 20050531
  2. ZOLPIDEM TARTRATE [Concomitant]
  3. ESTAZOLAM [Concomitant]
  4. DIAZEPAM [Concomitant]

REACTIONS (12)
  - ANOREXIA [None]
  - CONDITION AGGRAVATED [None]
  - DIFFICULTY IN WALKING [None]
  - DRUG ERUPTION [None]
  - INSOMNIA [None]
  - OEDEMA [None]
  - PAIN [None]
  - PIGMENTATION DISORDER [None]
  - PRURITUS [None]
  - PYREXIA [None]
  - RASH GENERALISED [None]
  - SKIN EXFOLIATION [None]
